FAERS Safety Report 18523596 (Version 3)
Quarter: 2020Q4

REPORT INFORMATION
  Report Type: Spontaneous
  Country: US (occurrence: US)
  Receive Date: 20201119
  Receipt Date: 20201224
  Transmission Date: 20210114
  Serious: No
  Sender: FDA-Public Use
  Company Number: US-009507513-2011USA009781

PATIENT
  Sex: Male

DRUGS (1)
  1. DULERA [Suspect]
     Active Substance: FORMOTEROL FUMARATE DIHYDRATE\MOMETASONE FUROATE
     Dosage: 1 INHALATION, BID

REACTIONS (6)
  - Device malfunction [Unknown]
  - Product use issue [Unknown]
  - No adverse event [Unknown]
  - Incorrect dose administered [Unknown]
  - Poor quality device used [Unknown]
  - Wrong technique in product usage process [Unknown]
